FAERS Safety Report 10427568 (Version 3)
Quarter: 2015Q1

REPORT INFORMATION
  Report Type: Spontaneous
  Country: JP (occurrence: JP)
  Receive Date: 20140903
  Receipt Date: 20150316
  Transmission Date: 20150720
  Serious: Yes (Hospitalization)
  Sender: FDA-Public Use
  Company Number: JP-PFIZER INC-2014239885

PATIENT
  Age: 74 Year
  Sex: Female
  Weight: 48 kg

DRUGS (13)
  1. LYRICA [Suspect]
     Active Substance: PREGABALIN
     Dosage: 75 MG, 1X/DAY
     Route: 048
     Dates: start: 20140328, end: 20140424
  2. YOKUKAN-SAN [Concomitant]
     Active Substance: UNSPECIFIED INGREDIENT
     Indication: BIPOLAR I DISORDER
     Dosage: 2.5 G, 3X/DAY
     Route: 048
     Dates: start: 20130329
  3. ARICEPT [Concomitant]
     Active Substance: DONEPEZIL HYDROCHLORIDE
     Indication: DEMENTIA ALZHEIMER^S TYPE
     Dosage: 5 MG, 1X/DAY
     Route: 048
     Dates: start: 20100730, end: 20140919
  4. LYRICA [Suspect]
     Active Substance: PREGABALIN
     Dosage: 150 MG, DAILY
  5. LYRICA [Suspect]
     Active Substance: PREGABALIN
     Dosage: 75 MG, 2X/DAY
     Route: 048
     Dates: start: 201401, end: 20140327
  6. VALPROIC ACID. [Concomitant]
     Active Substance: VALPROIC ACID
     Indication: DEMENTIA ALZHEIMER^S TYPE
     Dosage: 200 MG, 1X/DAY
     Route: 048
     Dates: start: 20080105, end: 20081227
  7. BENZALIN [Concomitant]
     Active Substance: NITRAZEPAM
     Indication: INSOMNIA
     Dosage: 5 MG, 1X/DAY
     Route: 048
     Dates: start: 1990
  8. SENNA [Concomitant]
     Active Substance: SENNA LEAF\SENNOSIDES\SENNOSIDES A AND B
     Indication: CONSTIPATION
     Dosage: 0.5 G, 1X/DAY
     Route: 048
     Dates: start: 200804
  9. ZYPREXA [Concomitant]
     Active Substance: OLANZAPINE
     Indication: BIPOLAR I DISORDER
     Dosage: 5 MG, 2X/DAY
     Route: 048
     Dates: start: 20110325
  10. LYRICA [Suspect]
     Active Substance: PREGABALIN
     Indication: PAIN
     Dosage: 150 MG, DAILY
     Dates: start: 201308, end: 20130930
  11. AMOBAN [Concomitant]
     Active Substance: ZOPICLONE
     Indication: INSOMNIA
     Dosage: 7.5 MG, 1X/DAY
     Route: 048
     Dates: start: 20140927
  12. METHYCOBAL [Concomitant]
     Active Substance: METHYLCOBALAMIN
     Dosage: 500 UG, 2X/DAY
     Route: 048
     Dates: start: 201301
  13. LYRICA [Suspect]
     Active Substance: PREGABALIN
     Dosage: 75 MG, DAILY

REACTIONS (6)
  - Fall [Not Recovered/Not Resolved]
  - Schizophrenia [Unknown]
  - Humerus fracture [Not Recovered/Not Resolved]
  - Muscular weakness [Not Recovered/Not Resolved]
  - Dizziness [Not Recovered/Not Resolved]
  - Musculoskeletal disorder [Not Recovered/Not Resolved]

NARRATIVE: CASE EVENT DATE: 20130927
